FAERS Safety Report 8731622 (Version 2)
Quarter: 2012Q4

REPORT INFORMATION
  Report Type: Report from Study
  Country: JP (occurrence: JP)
  Receive Date: 20120820
  Receipt Date: 20120928
  Transmission Date: 20130627
  Serious: No
  Sender: FDA-Public Use
  Company Number: JP-ASTELLAS-2012US007060

PATIENT
  Age: 56 Year
  Sex: Female

DRUGS (21)
  1. ERLOTINIB TABLET [Suspect]
     Indication: ADENOCARCINOMA PANCREAS
     Dosage: 100 mg, UID/QD
     Route: 048
     Dates: start: 20120420
  2. GEMCITABINE [Suspect]
     Indication: ADENOCARCINOMA PANCREAS
     Dosage: 1000 mg/m2, UID/QD
     Route: 041
     Dates: start: 20120420, end: 20120420
  3. GEMCITABINE [Suspect]
     Dosage: 1000 mg/m2, UID/QD
     Route: 041
     Dates: start: 20120429, end: 20120429
  4. GEMCITABINE [Suspect]
     Dosage: 1000 mg/m2, UID/QD
     Route: 041
     Dates: start: 20120507, end: 20120507
  5. GEMCITABINE [Suspect]
     Dosage: 1000 mg/m2, UID/QD
     Route: 041
     Dates: start: 20120518, end: 20120518
  6. GEMCITABINE [Suspect]
     Dosage: 1000 mg/m2, UID/QD
     Route: 041
     Dates: start: 20120525, end: 20120525
  7. GEMCITABINE [Suspect]
     Dosage: 1000 mg/m2, UID/QD
     Route: 041
     Dates: start: 20120601, end: 20120601
  8. GEMCITABINE [Suspect]
     Dosage: 1000 mg/m2, UID/QD
     Route: 041
     Dates: start: 20120615, end: 20120615
  9. GEMCITABINE [Suspect]
     Dosage: 1000 mg/m2, UID/QD
     Route: 041
     Dates: start: 20120622, end: 20120622
  10. GEMCITABINE [Suspect]
     Dosage: 1000 mg/m2, UID/QD
     Route: 041
     Dates: start: 20120629, end: 20120629
  11. GEMCITABINE [Suspect]
     Dosage: 1000 mg/m2, UID/QD
     Route: 041
     Dates: start: 20120713, end: 20120713
  12. GEMCITABINE [Suspect]
     Dosage: 1000 mg/m2, UID/QD
     Route: 041
     Dates: start: 20120720, end: 20120720
  13. FERRUM                             /00023505/ [Concomitant]
     Indication: PRODUCT USED FOR UNKNOWN INDICATION
     Dosage: 100 mg, UID/QD
     Route: 048
     Dates: start: 20120421, end: 20120427
  14. LOXOPROFEN [Concomitant]
     Indication: PRODUCT USED FOR UNKNOWN INDICATION
     Dosage: 180 mg, UID/QD
     Route: 048
  15. NEXIUM                             /01479302/ [Concomitant]
     Indication: PRODUCT USED FOR UNKNOWN INDICATION
     Dosage: 20 mg, UID/QD
     Route: 048
     Dates: start: 20120424
  16. LOPEMIN [Concomitant]
     Indication: PROPHYLAXIS
     Dosage: 3 mg, UID/QD
     Route: 048
     Dates: start: 20120425, end: 20120514
  17. LOCOID [Concomitant]
     Indication: PROPHYLAXIS
     Dosage: UNK
     Route: 065
     Dates: start: 20120425, end: 20120506
  18. RINDERON V [Concomitant]
     Indication: PROPHYLAXIS
     Dosage: UNK
     Route: 065
  19. MUCOSTA [Concomitant]
     Indication: PRODUCT USED FOR UNKNOWN INDICATION
     Dosage: 300 mg, UID/QD
     Route: 048
     Dates: start: 20120425
  20. LASIX                              /00032601/ [Concomitant]
     Indication: ADENOCARCINOMA PANCREAS
     Dosage: 20 mg, UID/QD
     Route: 048
     Dates: start: 20120622, end: 20120713
  21. ALDACTONE                          /00006201/ [Concomitant]
     Indication: ADENOCARCINOMA PANCREAS
     Dosage: 25 mg, UID/QD
     Route: 048
     Dates: start: 20120713, end: 20120727

REACTIONS (4)
  - Anaemia [Not Recovered/Not Resolved]
  - Anaemia [Not Recovered/Not Resolved]
  - Dermatitis acneiform [Recovering/Resolving]
  - Diarrhoea [Recovering/Resolving]
